FAERS Safety Report 4725788-1 (Version None)
Quarter: 2005Q3

REPORT INFORMATION
  Report Type: 
  Country: None (occurrence: None)
  Receive Date: 20050722
  Receipt Date: 20050722
  Transmission Date: 20060218
  Serious: Yes (Other)
  Sender: FDA-Public Use
  Company Number: None

PATIENT
  Age: 54 Year
  Sex: Male
  Weight: 64.4 kg

DRUGS (12)
  1. FOSINOPRIL SODIUM [Suspect]
  2. METOPROLOL TARTRATE [Concomitant]
  3. HYDROCHLOROTHIAZIDE [Concomitant]
  4. GUAIFENESIN [Concomitant]
  5. METOPROLOL TARTRATE [Concomitant]
  6. FOSINOPRIL SODIUM [Concomitant]
  7. OMEPRAZOLE [Concomitant]
  8. TABLET CUTTER [Concomitant]
  9. BISACODYL [Concomitant]
  10. COLON ELECTROLYTE LAVAGE PWD FOR SOLN [Concomitant]
  11. PHOSPHATES ENEMA [Concomitant]
  12. HYDROCORTISONE CREAM [Concomitant]

REACTIONS (1)
  - COUGH [None]
